FAERS Safety Report 14957141 (Version 1)
Quarter: 2018Q2

REPORT INFORMATION
  Report Type: Report from Study
  Country: US (occurrence: US)
  Receive Date: 20180531
  Receipt Date: 20180531
  Transmission Date: 20180711
  Serious: Yes (Other)
  Sender: FDA-Public Use
  Company Number: US-CIPLA (EU) LIMITED-2018US18295

PATIENT

DRUGS (2)
  1. GEMCITABINE [Suspect]
     Active Substance: GEMCITABINE\GEMCITABINE HYDROCHLORIDE
     Indication: PLEURAL MESOTHELIOMA MALIGNANT
     Dosage: UNK
     Route: 065
  2. CELECOXIB. [Suspect]
     Active Substance: CELECOXIB
     Indication: PLEURAL MESOTHELIOMA MALIGNANT
     Dosage: 14-DAY COURSE OF CELECOXIB (400 MG TWICE DAILY STARTING THREE DAYS
     Route: 048

REACTIONS (2)
  - Malignant neoplasm progression [Unknown]
  - Therapy non-responder [Unknown]
